FAERS Safety Report 13472441 (Version 1)
Quarter: 2017Q2

REPORT INFORMATION
  Report Type: Spontaneous
  Country: US (occurrence: US)
  Receive Date: 20170424
  Receipt Date: 20170424
  Transmission Date: 20170830
  Serious: Yes (Death, Hospitalization)
  Sender: FDA-Public Use
  Company Number: None

PATIENT
  Age: 69 Year
  Sex: Female
  Weight: 97.9 kg

DRUGS (3)
  1. NIVOLUMAB 40MG [Suspect]
     Active Substance: NIVOLUMAB
     Indication: NEUROENDOCRINE CARCINOMA OF THE SKIN
  2. IPILIMUMAB 50MG [Suspect]
     Active Substance: IPILIMUMAB
     Indication: NEUROENDOCRINE CARCINOMA OF THE SKIN
     Dosage: 80MG X1 IVSS
     Dates: start: 20170220
  3. NIVOLUMAB 100MG [Suspect]
     Active Substance: NIVOLUMAB
     Indication: NEUROENDOCRINE CARCINOMA OF THE SKIN
     Dosage: 246MG X1 IVSS
     Dates: start: 20170220

REACTIONS (12)
  - Atrial enlargement [None]
  - Atrioventricular block [None]
  - Bacteraemia [None]
  - Troponin increased [None]
  - Multiple organ dysfunction syndrome [None]
  - Nephritis [None]
  - Myocarditis [None]
  - Muscular weakness [None]
  - Myositis [None]
  - Myalgia [None]
  - Hepatitis [None]
  - Chest pain [None]

NARRATIVE: CASE EVENT DATE: 20170331
